FAERS Safety Report 13403547 (Version 2)
Quarter: 2017Q2

REPORT INFORMATION
  Report Type: Spontaneous
  Country: US (occurrence: US)
  Receive Date: 20170404
  Receipt Date: 20170409
  Transmission Date: 20170830
  Serious: No
  Sender: FDA-Public Use
  Company Number: US-TEVA-748218USA

PATIENT
  Age: 57 Year
  Sex: Male
  Weight: 82.63 kg

DRUGS (11)
  1. REMERON [Concomitant]
     Active Substance: MIRTAZAPINE
     Indication: POST-TRAUMATIC STRESS DISORDER
  2. DEPAKOTE [Concomitant]
     Active Substance: DIVALPROEX SODIUM
     Indication: BIPOLAR DISORDER
     Dosage: 1000MG
  3. PROVIGIL [Suspect]
     Active Substance: MODAFINIL
     Indication: BIPOLAR DISORDER
     Dosage: DOSE INCREASED
  4. REMERON [Concomitant]
     Active Substance: MIRTAZAPINE
     Indication: SLEEP DISORDER
     Dosage: 15 MG
  5. XANAX [Concomitant]
     Active Substance: ALPRAZOLAM
     Indication: POST-TRAUMATIC STRESS DISORDER
     Dosage: 3 MILLIGRAM DAILY; 1 MG THREE TIMES A DAY FOR HYPERSOMNIA, PANIC ATACGK TID
     Dates: start: 2016
  6. BUSPAR [Concomitant]
     Active Substance: BUSPIRONE HYDROCHLORIDE
     Indication: ANXIETY
     Dosage: 20 YEARS
  7. PROVIGIL [Suspect]
     Active Substance: MODAFINIL
     Indication: HYPERSOMNIA
  8. DEPAKOTE [Concomitant]
     Active Substance: DIVALPROEX SODIUM
     Indication: POST-TRAUMATIC STRESS DISORDER
  9. PROVIGIL [Suspect]
     Active Substance: MODAFINIL
     Indication: SLEEP APNOEA SYNDROME
     Dates: start: 2011
  10. REMERON [Concomitant]
     Active Substance: MIRTAZAPINE
     Indication: ANTIDEPRESSANT THERAPY
  11. PROVIGIL [Suspect]
     Active Substance: MODAFINIL
     Indication: BIPOLAR DISORDER

REACTIONS (10)
  - Drug withdrawal syndrome [Unknown]
  - Asthenia [Not Recovered/Not Resolved]
  - Weight increased [Unknown]
  - Increased appetite [Not Recovered/Not Resolved]
  - Loss of personal independence in daily activities [Unknown]
  - Fatigue [Unknown]
  - Drug ineffective [Not Recovered/Not Resolved]
  - Somnolence [Not Recovered/Not Resolved]
  - Depression [Not Recovered/Not Resolved]
  - Fear [Unknown]

NARRATIVE: CASE EVENT DATE: 2016
